FAERS Safety Report 4673944-3 (Version None)
Quarter: 2005Q2

REPORT INFORMATION
  Report Type: 
  Country: None (occurrence: None)
  Receive Date: 20050524
  Receipt Date: 20050505
  Transmission Date: 20051028
  Serious: Yes (Hospitalization)
  Sender: FDA-Public Use
  Company Number: CA_050508127

PATIENT
  Age: 15 Year
  Sex: Male
  Weight: 33 kg

DRUGS (1)
  1. HUMATROPE [Suspect]
     Indication: BLOOD GROWTH HORMONE DECREASED
     Dosage: 1.8 MG/1 AT BEDTIME
     Dates: start: 20010501, end: 20050223

REACTIONS (9)
  - DIARRHOEA [None]
  - DRUG EFFECT DECREASED [None]
  - ENDOCRINE PANCREATIC DISORDER [None]
  - GAMMA-GLUTAMYLTRANSFERASE INCREASED [None]
  - GROWTH RETARDATION [None]
  - PANCREATIC DUCT OBSTRUCTION [None]
  - PANCREATIC NEOPLASM [None]
  - TRANSAMINASES INCREASED [None]
  - WEIGHT DECREASED [None]
